FAERS Safety Report 8503730-5 (Version None)
Quarter: 2012Q3

REPORT INFORMATION
  Report Type: 
  Country: None (occurrence: None)
  Receive Date: 20120711
  Receipt Date: 20120702
  Transmission Date: 20120928
  Serious: No
  Sender: FDA-Public Use
  Company Number: US-009507513-1207USA000379

PATIENT

DRUGS (3)
  1. REBETOL [Suspect]
  2. VICTRELIS [Suspect]
     Indication: HEPATITIS C
     Dosage: 200 MG, TID
     Route: 048
     Dates: start: 20111201
  3. PEGASYS [Suspect]

REACTIONS (2)
  - APHTHOUS STOMATITIS [None]
  - DRY SKIN [None]
